FAERS Safety Report 6052519-8 (Version None)
Quarter: 2009Q1

REPORT INFORMATION
  Report Type: 
  Country: None (occurrence: None)
  Receive Date: 20090121
  Receipt Date: 20090112
  Transmission Date: 20090719
  Serious: Yes (Other)
  Sender: FDA-Public Use
  Company Number: 2009SP000883

PATIENT
  Age: 76 Year
  Sex: Female

DRUGS (2)
  1. CLARITIN [Suspect]
     Indication: NASOPHARYNGITIS
     Dosage: PO
     Route: 048
  2. BENICAR [Suspect]
     Indication: HYPERTENSION

REACTIONS (4)
  - ASTHENIA [None]
  - HYPERSENSITIVITY [None]
  - NASAL OEDEMA [None]
  - OEDEMA MOUTH [None]
